FAERS Safety Report 8141189-0 (Version None)
Quarter: 2012Q1

REPORT INFORMATION
  Report Type: 
  Country: None (occurrence: None)
  Receive Date: 20120216
  Receipt Date: 20120208
  Transmission Date: 20120608
  Serious: Yes (Other)
  Sender: FDA-Public Use
  Company Number: US-PFIZER INC-2012015047

PATIENT
  Sex: Female
  Weight: 79.4 kg

DRUGS (12)
  1. PRISTIQ [Concomitant]
     Dosage: UNK
  2. DETROL LA [Concomitant]
     Indication: BLADDER DISORDER
     Dosage: UNK
  3. DETROL LA [Concomitant]
     Indication: MULTIPLE SCLEROSIS
  4. TRAZODONE [Concomitant]
     Indication: MULTIPLE SCLEROSIS
  5. OXYBUTYNIN [Concomitant]
     Indication: MULTIPLE SCLEROSIS
  6. TRAZODONE [Concomitant]
     Indication: SLEEP DISORDER
     Dosage: UNK
  7. TOPAMAX [Concomitant]
     Indication: HEADACHE
     Dosage: UNK
  8. TOPAMAX [Concomitant]
     Indication: MULTIPLE SCLEROSIS
  9. PREMARIN [Concomitant]
     Indication: POSTOPERATIVE CARE
     Dosage: 1.25 MG, 1X/DAY
     Route: 048
     Dates: start: 19711001, end: 20090101
  10. PREMARIN [Concomitant]
     Dosage: 0.625 MG, 1X/DAY
     Route: 048
     Dates: start: 20090101
  11. ARTHROTEC [Suspect]
  12. OXYBUTYNIN [Concomitant]
     Indication: BLADDER DISORDER

REACTIONS (1)
  - LIVER DISORDER [None]
